FAERS Safety Report 6445796-2 (Version None)
Quarter: 2009Q4

REPORT INFORMATION
  Report Type: 
  Country: None (occurrence: None)
  Receive Date: 20091119
  Receipt Date: 20091109
  Transmission Date: 20100525
  Serious: Yes (Hospitalization, Other)
  Sender: FDA-Public Use
  Company Number: DE-BIOGENIDEC-2009BI036626

PATIENT
  Age: 37 Year
  Sex: Female
  Weight: 93 kg

DRUGS (6)
  1. TYSABRI [Suspect]
     Indication: MULTIPLE SCLEROSIS
     Route: 042
     Dates: start: 20080414
  2. ANTIDEPRESSANT [Concomitant]
  3. IBUPROFEN [Concomitant]
  4. ANTI-URINARY INCONTINENCE [Concomitant]
  5. ANTIINFECTIVE [Concomitant]
  6. CIPRO [Concomitant]

REACTIONS (2)
  - FEBRILE INFECTION [None]
  - URINARY TRACT INFECTION [None]
